FAERS Safety Report 6496187-X (Version None)
Quarter: 2009Q4

REPORT INFORMATION
  Report Type: 
  Country: None (occurrence: None)
  Receive Date: 20091214
  Receipt Date: 20091019
  Transmission Date: 20100525
  Serious: Yes (Hospitalization, Other)
  Sender: FDA-Public Use
  Company Number: US-BRISTOL-MYERS SQUIBB COMPANY-14821201

PATIENT
  Age: 31 Year
  Sex: Male
  Weight: 100 kg

DRUGS (1)
  1. ABILIFY [Suspect]
     Indication: BIPOLAR DISORDER
     Dosage: ON 24SEP08:RESTARTED AT 5MG
     Dates: start: 20080514

REACTIONS (8)
  - BLOOD TRIGLYCERIDES INCREASED [None]
  - DRY MOUTH [None]
  - NIGHT SWEATS [None]
  - PANCREATITIS [None]
  - POLLAKIURIA [None]
  - PSYCHOMOTOR HYPERACTIVITY [None]
  - TYPE 1 DIABETES MELLITUS [None]
  - URINE ANALYSIS ABNORMAL [None]
